FAERS Safety Report 4352953-8 (Version None)
Quarter: 2004Q2

REPORT INFORMATION
  Report Type: 
  Country: None (occurrence: None)
  Receive Date: 20040430
  Receipt Date: 20040114
  Transmission Date: 20050107
  Serious: No
  Sender: FDA-Public Use
  Company Number: 204188

PATIENT
  Age: 53 Year
  Sex: Male
  Weight: 86.2 kg

DRUGS (6)
  1. XOLAIR [Suspect]
     Indication: ASTHMA
     Dosage: 300 MG, Q2W, SUBCUTANEOUS
     Route: 058
     Dates: start: 20031201, end: 20040102
  2. ZONEGRAN [Concomitant]
  3. PHENOBARBITAL TAB [Concomitant]
  4. ATARAX [Concomitant]
  5. ADVAIR (SALMETEROL XINAFOATE, FLUTICASONE PROPIONATE) [Concomitant]
  6. ALLEGRA-D (PSEUDOEPHEDRINE HYDROCHLORIDE, FEXOFENADINE HYDROCHLORIDE) [Concomitant]

REACTIONS (6)
  - ATAXIA [None]
  - DISTURBANCE IN ATTENTION [None]
  - INFLUENZA LIKE ILLNESS [None]
  - NEUROLOGICAL SYMPTOM [None]
  - SPEECH DISORDER [None]
  - VISION BLURRED [None]
